FAERS Safety Report 16354163 (Version 1)
Quarter: 2019Q2

REPORT INFORMATION
  Report Type: Spontaneous
  Country: CA (occurrence: CA)
  Receive Date: 20190524
  Receipt Date: 20190524
  Transmission Date: 20190711
  Serious: Yes (Other)
  Sender: FDA-Public Use
  Company Number: CA-PURDUE PHARMA-CAN-2019-0010064

PATIENT
  Age: 71 Year
  Sex: Male
  Weight: 81 kg

DRUGS (19)
  1. CABAZITAXEL [Suspect]
     Active Substance: CABAZITAXEL
     Dosage: 38 MG, (1 EVERY 3 WEEKS)
     Route: 042
  2. CABAZITAXEL [Suspect]
     Active Substance: CABAZITAXEL
     Dosage: 38 MG, (1 EVERY 3 WEEKS)
     Route: 042
  3. DEXAMETHASONE. [Concomitant]
     Active Substance: DEXAMETHASONE
     Dosage: 2 DF, Q12H
     Route: 065
  4. BENADRYL [Concomitant]
     Active Substance: DIPHENHYDRAMINE HYDROCHLORIDE
     Indication: PREMEDICATION
     Dosage: 25 MG, UNK
     Route: 042
  5. CABAZITAXEL [Suspect]
     Active Substance: CABAZITAXEL
     Dosage: 38 MG, (1 EVERY 3 WEEKS)
     Route: 042
  6. CABAZITAXEL [Suspect]
     Active Substance: CABAZITAXEL
     Dosage: 38 MG, (1 EVERY 3 WEEKS)
     Route: 042
  7. CABAZITAXEL [Suspect]
     Active Substance: CABAZITAXEL
     Indication: PROSTATE CANCER
     Dosage: 38 MG, (1 EVERY 3 WEEKS)
     Route: 042
  8. CABAZITAXEL [Suspect]
     Active Substance: CABAZITAXEL
     Dosage: 38 MG, (1 EVERY 3 WEEKS)
     Route: 042
  9. OXYNEO [Suspect]
     Active Substance: OXYCODONE
     Indication: PRODUCT USED FOR UNKNOWN INDICATION
     Dosage: 20 MG, UNK
     Route: 065
  10. CABAZITAXEL [Suspect]
     Active Substance: CABAZITAXEL
     Dosage: 38 MG, (1 EVERY 3 WEEKS)
     Route: 042
  11. DEXAMETHASONE. [Concomitant]
     Active Substance: DEXAMETHASONE
     Indication: PREMEDICATION
     Dosage: 8 MG, UNK
     Route: 042
  12. RANITIDINE. [Concomitant]
     Active Substance: RANITIDINE
     Indication: PREMEDICATION
     Dosage: 50 MG, UNK
     Route: 042
  13. OXYNEO [Suspect]
     Active Substance: OXYCODONE
     Dosage: 15 MG, UNK
     Route: 065
  14. CABAZITAXEL [Suspect]
     Active Substance: CABAZITAXEL
     Dosage: 38 MG, (1 EVERY 3 WEEKS)
     Route: 042
  15. CABAZITAXEL [Suspect]
     Active Substance: CABAZITAXEL
     Dosage: 38 MG, (1 EVERY 3 WEEKS)
     Route: 042
  16. CABAZITAXEL [Suspect]
     Active Substance: CABAZITAXEL
     Dosage: 38 MG, (1 EVERY 3 WEEKS)
     Route: 042
  17. CABAZITAXEL [Suspect]
     Active Substance: CABAZITAXEL
     Dosage: 38 MG, (1 EVERY 3 WEEKS)
     Route: 042
  18. CABAZITAXEL [Suspect]
     Active Substance: CABAZITAXEL
     Dosage: 38 MG, (1 EVERY 3 WEEKS)
     Route: 042
  19. CABAZITAXEL [Suspect]
     Active Substance: CABAZITAXEL
     Dosage: 38 MG, (1 EVERY 3 WEEKS)
     Route: 042

REACTIONS (18)
  - Red blood cell count decreased [Not Recovered/Not Resolved]
  - Headache [Not Recovered/Not Resolved]
  - Malaise [Not Recovered/Not Resolved]
  - Dry mouth [Not Recovered/Not Resolved]
  - White blood cell count decreased [Not Recovered/Not Resolved]
  - Contusion [Not Recovered/Not Resolved]
  - Dyspepsia [Not Recovered/Not Resolved]
  - Haematocrit decreased [Not Recovered/Not Resolved]
  - Haemoglobin decreased [Not Recovered/Not Resolved]
  - Hypoaesthesia [Not Recovered/Not Resolved]
  - Neutropenia [Not Recovered/Not Resolved]
  - Nausea [Not Recovered/Not Resolved]
  - Anaemia [Not Recovered/Not Resolved]
  - Vomiting [Not Recovered/Not Resolved]
  - Dizziness [Not Recovered/Not Resolved]
  - Constipation [Not Recovered/Not Resolved]
  - Prostatic specific antigen abnormal [Not Recovered/Not Resolved]
  - Fatigue [Not Recovered/Not Resolved]
